FAERS Safety Report 24246600 (Version 1)
Quarter: 2024Q3

REPORT INFORMATION
  Report Type: Spontaneous
  Country: GB (occurrence: GB)
  Receive Date: 20240825
  Receipt Date: 20240825
  Transmission Date: 20241016
  Serious: Yes (Life-Threatening, Other)
  Sender: JOHNSON AND JOHNSON
  Company Number: None

PATIENT
  Age: 41 Year
  Sex: Female

DRUGS (1)
  1. STELARA [Suspect]
     Active Substance: USTEKINUMAB
     Indication: Crohn^s disease
     Dosage: 90MG SC EVERY 8 WEEKS
     Route: 058
     Dates: start: 2020

REACTIONS (1)
  - Lung adenocarcinoma stage III [Not Recovered/Not Resolved]

NARRATIVE: CASE EVENT DATE: 20240501
